FAERS Safety Report 8176378-2 (Version None)
Quarter: 2012Q1

REPORT INFORMATION
  Report Type: 
  Country: None (occurrence: None)
  Receive Date: 20120227
  Receipt Date: 20120227
  Transmission Date: 20120608
  Serious: No
  Sender: FDA-Public Use
  Company Number: None

PATIENT

DRUGS (1)
  1. LEVOCARNITINE [Suspect]
     Indication: CONVULSION
     Dosage: 100MG/ML 2 TEASPOONS TID
     Route: 048

REACTIONS (2)
  - GASTROINTESTINAL TRACT IRRITATION [None]
  - PRODUCT SUBSTITUTION ISSUE [None]
